FAERS Safety Report 8182224 (Version 3)
Quarter: 2012Q4

REPORT INFORMATION
  Report Type: Report from Study
  Country: CA (occurrence: CA)
  Receive Date: 20111014
  Receipt Date: 20121029
  Transmission Date: 20130627
  Serious: Yes (Hospitalization, Other)
  Sender: FDA-Public Use
  Company Number: CA-ROCHE-796947

PATIENT
  Age: 62 Year
  Sex: Female
  Weight: 77.18 kg

DRUGS (19)
  1. RITUXIMAB [Suspect]
     Indication: RHEUMATOID ARTHRITIS
     Route: 042
     Dates: start: 20091126, end: 20100729
  2. MEDROL [Concomitant]
  3. ADALAT [Concomitant]
     Indication: BLOOD PRESSURE
  4. INSULIN [Concomitant]
  5. PREVACID [Concomitant]
  6. SEPTRA DS [Concomitant]
     Dosage: DRUG NAME MENTIONED AS CEPTRA DS, THERAPY DATES ; FOR 2 YEARS
     Route: 065
  7. COZAAR [Concomitant]
     Indication: BLOOD PRESSURE
  8. CALTRATE [Concomitant]
  9. FOLIC ACID [Concomitant]
  10. VITAMIN D3-5 [Concomitant]
  11. CRESTOR [Concomitant]
  12. MORPHINE [Concomitant]
     Indication: PAIN
  13. OXYCOCET [Concomitant]
     Indication: PAIN
  14. METRONIDAZOLE [Concomitant]
     Indication: ANTIBIOTIC THERAPY
     Dosage: DOSE : 14 PILLS
     Route: 065
  15. DIPHENHYDRAMINE HYDROCHLORIDE [Concomitant]
     Route: 048
  16. ACETAMINOFEN [Concomitant]
     Route: 048
  17. METHOTREXATE [Concomitant]
  18. METHYLPREDNISOLONE [Concomitant]
     Route: 042
     Dates: start: 20100729
  19. HUMULIN [Concomitant]

REACTIONS (3)
  - Enteritis infectious [Recovering/Resolving]
  - Intestinal obstruction [Recovering/Resolving]
  - Angina pectoris [Recovering/Resolving]
